FAERS Safety Report 17244479 (Version 5)
Quarter: 2021Q4

REPORT INFORMATION
  Report Type: Spontaneous
  Country: US (occurrence: US)
  Receive Date: 20200107
  Receipt Date: 20211130
  Transmission Date: 20220303
  Serious: Yes (Death, Hospitalization, Other)
  Sender: FDA-Public Use
  Company Number: US-GILEAD-2020-0445100

PATIENT
  Age: 41 Year
  Sex: Female

DRUGS (75)
  1. TRUVADA [Suspect]
     Active Substance: EMTRICITABINE\TENOFOVIR DISOPROXIL FUMARATE
     Indication: HIV infection
     Dosage: UNK
     Route: 048
     Dates: start: 2004, end: 2008
  2. TRUVADA [Suspect]
     Active Substance: EMTRICITABINE\TENOFOVIR DISOPROXIL FUMARATE
     Dosage: UNK
     Route: 048
     Dates: start: 200907, end: 201409
  3. TRUVADA [Suspect]
     Active Substance: EMTRICITABINE\TENOFOVIR DISOPROXIL FUMARATE
     Dosage: UNK
     Route: 048
     Dates: start: 20060808, end: 20090818
  4. TRUVADA [Suspect]
     Active Substance: EMTRICITABINE\TENOFOVIR DISOPROXIL FUMARATE
     Dosage: UNK
     Route: 048
     Dates: start: 20090808, end: 20141114
  5. TRUVADA [Suspect]
     Active Substance: EMTRICITABINE\TENOFOVIR DISOPROXIL FUMARATE
     Dosage: UNK
     Route: 048
     Dates: start: 20090707, end: 20100309
  6. TRUVADA [Suspect]
     Active Substance: EMTRICITABINE\TENOFOVIR DISOPROXIL FUMARATE
     Dosage: UNK
     Route: 048
     Dates: start: 20100915, end: 20110705
  7. TRUVADA [Suspect]
     Active Substance: EMTRICITABINE\TENOFOVIR DISOPROXIL FUMARATE
     Dosage: UNK
     Route: 048
     Dates: start: 20110705, end: 20120715
  8. TRUVADA [Suspect]
     Active Substance: EMTRICITABINE\TENOFOVIR DISOPROXIL FUMARATE
     Dosage: UNK
     Route: 048
     Dates: start: 20120715, end: 20121204
  9. TRUVADA [Suspect]
     Active Substance: EMTRICITABINE\TENOFOVIR DISOPROXIL FUMARATE
     Dosage: UNK
     Route: 048
     Dates: start: 20121204, end: 201309
  10. ATRIPLA [Suspect]
     Active Substance: EFAVIRENZ\EMTRICITABINE\TENOFOVIR DISOPROXIL FUMARATE
     Indication: HIV infection
     Dosage: UNK
     Route: 048
     Dates: start: 20060808, end: 200808
  11. ATRIPLA [Suspect]
     Active Substance: EFAVIRENZ\EMTRICITABINE\TENOFOVIR DISOPROXIL FUMARATE
     Dosage: UNK
     Route: 048
     Dates: start: 2008, end: 2011
  12. ATRIPLA [Suspect]
     Active Substance: EFAVIRENZ\EMTRICITABINE\TENOFOVIR DISOPROXIL FUMARATE
     Dosage: UNK
     Route: 048
     Dates: start: 20060808, end: 20090818
  13. ATRIPLA [Suspect]
     Active Substance: EFAVIRENZ\EMTRICITABINE\TENOFOVIR DISOPROXIL FUMARATE
     Dosage: UNK
     Route: 048
     Dates: start: 20060808, end: 200705
  14. ATRIPLA [Suspect]
     Active Substance: EFAVIRENZ\EMTRICITABINE\TENOFOVIR DISOPROXIL FUMARATE
     Dosage: UNK
     Route: 048
     Dates: start: 20100309, end: 20100915
  15. ATRIPLA [Suspect]
     Active Substance: EFAVIRENZ\EMTRICITABINE\TENOFOVIR DISOPROXIL FUMARATE
     Dosage: UNK
     Route: 048
     Dates: start: 20080805, end: 20080805
  16. ATRIPLA [Suspect]
     Active Substance: EFAVIRENZ\EMTRICITABINE\TENOFOVIR DISOPROXIL FUMARATE
     Dosage: UNK
     Route: 048
     Dates: start: 20090707, end: 20090810
  17. ACETAMINOPHEN [Concomitant]
     Active Substance: ACETAMINOPHEN
  18. ACYCLOVIR [Concomitant]
     Active Substance: ACYCLOVIR
     Dosage: UNK
     Route: 065
     Dates: start: 201002, end: 201002
  19. AMOXICILLIN [Concomitant]
     Active Substance: AMOXICILLIN
     Dosage: UNK
     Route: 065
     Dates: start: 201002, end: 201002
  20. ASPIRIN [Concomitant]
     Active Substance: ASPIRIN
  21. BACTRIM [Concomitant]
     Active Substance: SULFAMETHOXAZOLE\TRIMETHOPRIM
  22. CEFTAZIDIME [Concomitant]
     Active Substance: CEFTAZIDIME
     Dosage: UNK
     Route: 065
     Dates: start: 201807, end: 201808
  23. ESOMEPRAZOLE [Concomitant]
     Active Substance: ESOMEPRAZOLE
     Dosage: UNK
     Route: 065
     Dates: start: 201002, end: 201002
  24. PREDNISOLONE [Concomitant]
     Active Substance: PREDNISOLONE
  25. RANITIDINE [Concomitant]
     Active Substance: RANITIDINE
     Dosage: UNK
     Route: 065
     Dates: end: 20100302
  26. VANCOMYCIN [Concomitant]
     Active Substance: VANCOMYCIN
  27. WARFARIN [Concomitant]
     Active Substance: WARFARIN
  28. COMBIVIR [Concomitant]
     Active Substance: LAMIVUDINE\ZIDOVUDINE
     Indication: HIV infection
     Dosage: UNK
     Route: 065
     Dates: start: 20031125, end: 20040113
  29. EPIVIR [Concomitant]
     Active Substance: LAMIVUDINE
     Indication: HIV infection
     Dosage: UNK
     Route: 065
     Dates: start: 20040727, end: 20041026
  30. EPZICOM [Concomitant]
     Active Substance: ABACAVIR SULFATE\LAMIVUDINE
     Indication: HIV infection
     Dosage: UNK
     Route: 065
     Dates: start: 2014
  31. NORVIR [Concomitant]
     Active Substance: RITONAVIR
     Indication: HIV infection
     Dosage: UNK
     Dates: end: 20141114
  32. PREZISTA [Concomitant]
     Active Substance: DARUNAVIR ETHANOLATE
     Indication: HIV infection
     Dosage: UNK
     Dates: end: 20141114
  33. REYATAZ [Concomitant]
     Active Substance: ATAZANAVIR SULFATE
     Indication: HIV infection
     Dosage: UNK
     Route: 065
     Dates: start: 20031124, end: 20040727
  34. SUSTIVA [Concomitant]
     Active Substance: EFAVIRENZ
     Indication: HIV infection
  35. TIVICAY [Concomitant]
     Active Substance: DOLUTEGRAVIR SODIUM
     Indication: HIV infection
     Dosage: UNK
     Route: 065
     Dates: start: 2014, end: 20150616
  36. TRIUMEQ [Concomitant]
     Active Substance: ABACAVIR SULFATE\DOLUTEGRAVIR SODIUM\LAMIVUDINE
     Indication: HIV infection
     Dosage: UNK
     Route: 065
     Dates: start: 2015, end: 20180814
  37. LEXAPRO [Concomitant]
     Active Substance: ESCITALOPRAM OXALATE
  38. HAVRIX [Concomitant]
     Active Substance: HEPATITIS A VIRUS STRAIN HM175 ANTIGEN (FORMALDEHYDE INACTIVATED)
  39. METOPROLOL TARTRATE [Concomitant]
     Active Substance: METOPROLOL TARTRATE
  40. ZESTRIL [Concomitant]
     Active Substance: LISINOPRIL
  41. PROMETHAZINE [Concomitant]
     Active Substance: PROMETHAZINE HYDROCHLORIDE
  42. OXYCODONE [Concomitant]
     Active Substance: OXYCODONE
  43. LEVAQUIN [Concomitant]
     Active Substance: LEVOFLOXACIN
  44. TRAMADOL [Concomitant]
     Active Substance: TRAMADOL
  45. ZOVIRAX [Concomitant]
     Active Substance: ACYCLOVIR
  46. DAPSONE [Concomitant]
     Active Substance: DAPSONE
  47. HYDROCODONE [Concomitant]
     Active Substance: HYDROCODONE
  48. CYPROHEPTADINE [Concomitant]
     Active Substance: CYPROHEPTADINE
  49. HYDROXYZINE [Concomitant]
     Active Substance: HYDROXYZINE HYDROCHLORIDE
  50. HYDROCORTISONE [Concomitant]
     Active Substance: HYDROCORTISONE
  51. CITALOPRAM [Concomitant]
     Active Substance: CITALOPRAM HYDROBROMIDE
  52. BUPROPION [Concomitant]
     Active Substance: BUPROPION
  53. RETROVIR [Concomitant]
     Active Substance: ZIDOVUDINE
  54. NOVOLOG [Concomitant]
     Active Substance: INSULIN ASPART
  55. CLOTRIMAZOLE [Concomitant]
     Active Substance: CLOTRIMAZOLE
  56. LIDODERM [Concomitant]
     Active Substance: LIDOCAINE
  57. SEVELAMER [Concomitant]
     Active Substance: SEVELAMER
  58. CALCIUM ACETATE [Concomitant]
     Active Substance: CALCIUM ACETATE
  59. ATORVASTATIN [Concomitant]
     Active Substance: ATORVASTATIN
  60. CRESTOR [Concomitant]
     Active Substance: ROSUVASTATIN CALCIUM
  61. DEXAMETHASONE [Concomitant]
     Active Substance: DEXAMETHASONE
  62. HEPARIN [Concomitant]
     Active Substance: HEPARIN SODIUM
  63. LASIX [Concomitant]
     Active Substance: FUROSEMIDE
  64. OMEPRAZOLE [Concomitant]
     Active Substance: OMEPRAZOLE
  65. RANITIDINE [Concomitant]
     Active Substance: RANITIDINE
  66. ZERIT [Concomitant]
     Active Substance: STAVUDINE
  67. LISINOPRIL [Concomitant]
     Active Substance: LISINOPRIL
  68. LANTUS [Concomitant]
     Active Substance: INSULIN GLARGINE
  69. PROTONIX [Concomitant]
     Active Substance: PANTOPRAZOLE SODIUM
  70. LORAZEPAM [Concomitant]
     Active Substance: LORAZEPAM
  71. AMLODIPINE [Concomitant]
     Active Substance: AMLODIPINE BESYLATE
  72. DOCUSATE [Concomitant]
     Active Substance: DOCUSATE
  73. ZYRTEC [Concomitant]
     Active Substance: CETIRIZINE HYDROCHLORIDE
  74. POLYMYXIN B -TRIMETHOPRIM OPHTHA. [Concomitant]
  75. LEVAQUIN [Concomitant]
     Active Substance: LEVOFLOXACIN

REACTIONS (23)
  - Death [Fatal]
  - End stage renal disease [Recovered/Resolved]
  - End stage renal disease [Unknown]
  - Chronic kidney disease [Recovered/Resolved]
  - Chronic kidney disease [Unknown]
  - Renal impairment [Unknown]
  - Headache [Unknown]
  - Sinusitis [Unknown]
  - Pyelonephritis [Unknown]
  - Hypoaesthesia [Unknown]
  - Vision blurred [Unknown]
  - Drooling [Unknown]
  - Multiple fractures [Unknown]
  - Renal failure [Unknown]
  - Nausea [Unknown]
  - Emotional distress [Not Recovered/Not Resolved]
  - Anhedonia [Not Recovered/Not Resolved]
  - Anxiety [Not Recovered/Not Resolved]
  - Pain [Not Recovered/Not Resolved]
  - Economic problem [Not Recovered/Not Resolved]
  - Somnolence [Unknown]
  - Urinary tract infection [Unknown]
  - Rash [Unknown]

NARRATIVE: CASE EVENT DATE: 20100201
